FAERS Safety Report 25780525 (Version 3)
Quarter: 2025Q4

REPORT INFORMATION
  Report Type: Spontaneous
  Country: US (occurrence: US)
  Receive Date: 20250909
  Receipt Date: 20251229
  Transmission Date: 20260117
  Serious: Yes (Other)
  Sender: SANOFI AVENTIS
  Company Number: US-SA-2025SA266384

PATIENT
  Age: 74 Year
  Sex: Male

DRUGS (1)
  1. DUPIXENT [Suspect]
     Active Substance: DUPILUMAB
     Indication: Asthma
     Dosage: 300 MG, QOW
     Route: 058

REACTIONS (5)
  - Transient ischaemic attack [Unknown]
  - Dyspnoea [Unknown]
  - Weight increased [Unknown]
  - Eosinophil count increased [Unknown]
  - Sinusitis [Unknown]

NARRATIVE: CASE EVENT DATE: 20250101
